FAERS Safety Report 8155107-2 (Version None)
Quarter: 2012Q1

REPORT INFORMATION
  Report Type: 
  Country: None (occurrence: None)
  Receive Date: 20120221
  Receipt Date: 20120216
  Transmission Date: 20120608
  Serious: Yes (Hospitalization)
  Sender: FDA-Public Use
  Company Number: JP-ABBOTT-11P-087-0845581-00

PATIENT
  Sex: Male

DRUGS (8)
  1. REBAMIPIDE [Concomitant]
     Indication: ACUTE SINUSITIS
     Route: 048
     Dates: start: 20110805, end: 20110808
  2. EBASTINE [Concomitant]
     Indication: ACUTE SINUSITIS
     Route: 048
     Dates: start: 20110805, end: 20110808
  3. MUCODYNE [Suspect]
     Indication: ACUTE SINUSITIS
     Route: 048
     Dates: start: 20110805, end: 20110808
  4. CLARITHROMYCIN [Suspect]
     Indication: ACUTE SINUSITIS
     Route: 048
     Dates: end: 20110808
  5. HUSCODE [Concomitant]
     Indication: ACUTE SINUSITIS
     Route: 048
     Dates: start: 20110805, end: 20110808
  6. THEOPHYLLINE [Concomitant]
     Indication: COUGH
     Route: 048
     Dates: end: 20110808
  7. RESPLEN [Concomitant]
     Indication: COUGH
     Route: 048
     Dates: end: 20110808
  8. MUCOSTA [Concomitant]
     Indication: ACUTE SINUSITIS
     Route: 048
     Dates: start: 20110805

REACTIONS (1)
  - LIVER DISORDER [None]
